FAERS Safety Report 17861618 (Version 1)
Quarter: 2020Q2

REPORT INFORMATION
  Report Type: Report from Study
  Country: IN (occurrence: IN)
  Receive Date: 20200604
  Receipt Date: 20200604
  Transmission Date: 20200714
  Serious: Yes (Other)
  Sender: FDA-Public Use
  Company Number: NVSC2020IN152432

PATIENT
  Age: 49 Year
  Sex: Male
  Weight: 81 kg

DRUGS (1)
  1. GALVUS MET [Suspect]
     Active Substance: METFORMIN HYDROCHLORIDE\VILDAGLIPTIN
     Indication: DIABETES MELLITUS
     Dosage: UNK (1-0-1) (SINCE 6 YEARS)
     Route: 048

REACTIONS (5)
  - Blood pressure increased [Unknown]
  - Blood glucose increased [Unknown]
  - Hyperglycaemia [Unknown]
  - Blood pressure fluctuation [Unknown]
  - Weight increased [Unknown]

NARRATIVE: CASE EVENT DATE: 20200528
